FAERS Safety Report 8465033-7 (Version None)
Quarter: 2012Q2

REPORT INFORMATION
  Report Type: 
  Country: None (occurrence: None)
  Receive Date: 20120626
  Receipt Date: 20120618
  Transmission Date: 20120825
  Serious: Yes (Death)
  Sender: FDA-Public Use
  Company Number: JP-SANOFI-AVENTIS-2012SA043413

PATIENT
  Age: 60 Year
  Sex: Male

DRUGS (4)
  1. OXALIPLATIN [Suspect]
     Indication: RECTAL CANCER
     Route: 041
     Dates: start: 20120530, end: 20120530
  2. FLUOROURACIL [Suspect]
     Indication: RECTAL CANCER
     Dosage: REGIMEN:1
     Route: 040
     Dates: start: 20120530, end: 20120530
  3. LEUCOVORIN CALCIUM [Concomitant]
     Dates: start: 20120530, end: 20120530
  4. FLUOROURACIL [Suspect]
     Dosage: REGIMEN: 2
     Route: 041
     Dates: start: 20120530, end: 20120531

REACTIONS (1)
  - CARDIO-RESPIRATORY ARREST [None]
